FAERS Safety Report 9245923 (Version 2)
Quarter: 2013Q2

REPORT INFORMATION
  Report Type: Spontaneous
  Country: US (occurrence: US)
  Receive Date: 20130422
  Receipt Date: 20130426
  Transmission Date: 20140414
  Serious: Yes (Other)
  Sender: FDA-Public Use
  Company Number: US-PFIZER INC-2013120271

PATIENT
  Age: 55 Year
  Sex: Female
  Weight: 60.77 kg

DRUGS (7)
  1. LIPITOR [Suspect]
     Indication: LOW DENSITY LIPOPROTEIN
     Dosage: 10 MG, 1X/DAY
     Dates: start: 2005
  2. ATORVASTATIN CALCIUM [Suspect]
     Indication: LOW DENSITY LIPOPROTEIN
     Dosage: 10 MG, 1X/DAY
  3. NIASPAN [Concomitant]
     Indication: LOW DENSITY LIPOPROTEIN
     Dosage: UNK
  4. SYNTHROID [Concomitant]
     Dosage: UNK
  5. FISH OIL [Concomitant]
     Dosage: UNK
  6. NORVASC [Concomitant]
     Indication: HYPERTENSION
     Dosage: 2.5 MG, 1X/DAY
  7. COREG CR [Concomitant]
     Indication: CARDIAC DISORDER
     Dosage: 20 MG, 1X/DAY
     Dates: start: 200509

REACTIONS (4)
  - Systemic lupus erythematosus [Unknown]
  - Hypersensitivity [Unknown]
  - Eye swelling [Unknown]
  - Hypoaesthesia [Unknown]
